FAERS Safety Report 21962906 (Version 1)
Quarter: 2023Q1

REPORT INFORMATION
  Report Type: Spontaneous
  Country: CA (occurrence: CA)
  Receive Date: 20230207
  Receipt Date: 20230207
  Transmission Date: 20230417
  Serious: Yes (Hospitalization, Other)
  Sender: FDA-Public Use
  Company Number: CA-BAXTER-2023BAX012088

PATIENT
  Age: 76 Year
  Sex: Female

DRUGS (3)
  1. CYCLOPHOSPHAMIDE [Suspect]
     Active Substance: CYCLOPHOSPHAMIDE
     Indication: Glomerulonephritis membranous
     Dosage: DOSAGE FORM: NOT SPECIFIED
     Route: 065
  2. CYCLOSPORINE [Suspect]
     Active Substance: CYCLOSPORINE
     Indication: Glomerulonephritis membranous
     Dosage: DOSAGE FORM: NOT SPECIFIED
     Route: 065
  3. PREDNISONE [Suspect]
     Active Substance: PREDNISONE
     Indication: Glomerulonephritis membranous
     Dosage: DOSAGE FORM: NOT SPECIFIED
     Route: 065

REACTIONS (5)
  - Drug intolerance [Unknown]
  - Drug ineffective [Unknown]
  - Product use in unapproved indication [Unknown]
  - Proteinuria [Unknown]
  - Generalised oedema [Unknown]
